FAERS Safety Report 5375736-9 (Version None)
Quarter: 2007Q2

REPORT INFORMATION
  Report Type: 
  Country: None (occurrence: None)
  Receive Date: 20070628
  Receipt Date: 20070621
  Transmission Date: 20071010
  Serious: Yes (Hospitalization)
  Sender: FDA-Public Use
  Company Number: 2007BI002543

PATIENT
  Age: 64 Year
  Sex: Male
  Weight: 93.8946 kg

DRUGS (4)
  1. AVONEX [Suspect]
     Indication: MULTIPLE SCLEROSIS
     Dosage: 30 UG;QW;IM
     Route: 030
     Dates: start: 20001001
  2. METFORMIN HCL [Concomitant]
  3. LIPITOR [Concomitant]
  4. MIRALAX [Concomitant]

REACTIONS (7)
  - DIABETES MELLITUS [None]
  - HEMIANOPIA HOMONYMOUS [None]
  - HYPERTENSION [None]
  - MOBILITY DECREASED [None]
  - MULTIPLE SCLEROSIS RELAPSE [None]
  - VISUAL ACUITY REDUCED [None]
  - WEIGHT DECREASED [None]
